FAERS Safety Report 7880533-6 (Version None)
Quarter: 2011Q4

REPORT INFORMATION
  Report Type: 
  Country: None (occurrence: None)
  Receive Date: 20111101
  Receipt Date: 20111027
  Transmission Date: 20120403
  Serious: Yes (Death, Other)
  Sender: FDA-Public Use
  Company Number: PHHY2011US06986

PATIENT
  Sex: Female
  Weight: 64.52 kg

DRUGS (2)
  1. EXJADE [Suspect]
     Indication: THALASSAEMIA
     Dosage: 1000 MG, DAILY
     Route: 048
     Dates: start: 20060601
  2. EXJADE [Suspect]
     Indication: IRON OVERLOAD
     Dosage: 1000 MG, DAILY
     Route: 048
     Dates: start: 20110817

REACTIONS (5)
  - ABDOMINAL PAIN UPPER [None]
  - MEMORY IMPAIRMENT [None]
  - GASTROINTESTINAL HAEMORRHAGE [None]
  - DEATH [None]
  - DIARRHOEA [None]
